FAERS Safety Report 18052319 (Version 3)
Quarter: 2020Q4

REPORT INFORMATION
  Report Type: Spontaneous
  Country: US (occurrence: US)
  Receive Date: 20200722
  Receipt Date: 20201029
  Transmission Date: 20210113
  Serious: No
  Sender: FDA-Public Use
  Company Number: US-ELI_LILLY_AND_COMPANY-US202007008682

PATIENT
  Age: 52 Year
  Sex: Female

DRUGS (4)
  1. TALTZ [Suspect]
     Active Substance: IXEKIZUMAB
     Indication: PSORIATIC ARTHROPATHY
     Dosage: 80 MG, UNKNOWN
     Route: 058
     Dates: start: 20191219, end: 202007
  2. TALTZ [Suspect]
     Active Substance: IXEKIZUMAB
     Indication: PSORIATIC ARTHROPATHY
  3. TALTZ [Suspect]
     Active Substance: IXEKIZUMAB
     Indication: PSORIASIS
  4. TALTZ [Suspect]
     Active Substance: IXEKIZUMAB
     Indication: PSORIASIS
     Dosage: 80 MG, UNKNOWN
     Route: 058
     Dates: start: 20201006

REACTIONS (8)
  - Dysuria [Unknown]
  - Lyme disease [Recovering/Resolving]
  - Pollakiuria [Unknown]
  - Weight decreased [Unknown]
  - Skin ulcer [Unknown]
  - Abdominal pain upper [Unknown]
  - Productive cough [Unknown]
  - Diarrhoea [Unknown]

NARRATIVE: CASE EVENT DATE: 202006
